FAERS Safety Report 9274786 (Version 2)
Quarter: 2013Q3

REPORT INFORMATION
  Report Type: Spontaneous
  Country: NO (occurrence: NO)
  Receive Date: 20130507
  Receipt Date: 20130916
  Transmission Date: 20140515
  Serious: Yes (Life-Threatening, Hospitalization, Other)
  Sender: FDA-Public Use
  Company Number: NO-ACCORD-017454

PATIENT
  Age: 83 Year
  Sex: Female

DRUGS (5)
  1. DONEPEZIL [Suspect]
     Indication: DEMENTIA ALZHEIMER^S TYPE
     Route: 048
     Dates: start: 20130304, end: 20130411
  2. METOPROLOL [Interacting]
     Indication: HYPERTENSION
     Route: 048
     Dates: end: 20130411
  3. ENALAPRIL MALEATE/HCTZ [Concomitant]
     Indication: HYPERTENSION
     Dosage: 20 MG ENALAPRIL/12.5 MG HYDROCHLOROTIAZIDE
  4. ALENDRONIC ACID [Concomitant]
     Indication: OSTEOPOROSIS
  5. OVESTERIN [Concomitant]
     Indication: OSTEOPOROSIS

REACTIONS (9)
  - Atrioventricular block [Not Recovered/Not Resolved]
  - Dyspnoea [Not Recovered/Not Resolved]
  - Nausea [Not Recovered/Not Resolved]
  - Chest pain [Not Recovered/Not Resolved]
  - Bradycardia [Not Recovered/Not Resolved]
  - Weight decreased [Not Recovered/Not Resolved]
  - Decreased appetite [Not Recovered/Not Resolved]
  - Fatigue [Not Recovered/Not Resolved]
  - Drug interaction [Unknown]
